FAERS Safety Report 21497637 (Version 1)
Quarter: 2022Q4

REPORT INFORMATION
  Report Type: Report from Study
  Country: US (occurrence: US)
  Receive Date: 20221024
  Receipt Date: 20221024
  Transmission Date: 20230113
  Serious: No
  Sender: FDA-Public Use
  Company Number: US-ABBVIE-4146961

PATIENT
  Sex: Female

DRUGS (1)
  1. HUMIRA [Suspect]
     Active Substance: ADALIMUMAB
     Indication: Psoriasis
     Dosage: EVENT ONSET DATE FOR ALLERGIC REACTION IS 2022 AND CESSATION DATE IS 2022. ONSET DATE FOR RASH ON...
     Route: 058
     Dates: start: 20220610, end: 20220701

REACTIONS (3)
  - Hypersensitivity [Recovered/Resolved]
  - Rash [Unknown]
  - Cellulitis [Unknown]
